FAERS Safety Report 7942318-1 (Version None)
Quarter: 2011Q4

REPORT INFORMATION
  Report Type: 
  Country: None (occurrence: None)
  Receive Date: 20111128
  Receipt Date: 20111122
  Transmission Date: 20120403
  Serious: Yes (Hospitalization)
  Sender: FDA-Public Use
  Company Number: FR-AMGEN-FRASP2011061505

PATIENT
  Age: 25 Year
  Sex: Female

DRUGS (2)
  1. DOXORUBICIN HCL [Concomitant]
     Indication: METASTASIS
     Dosage: 75 MG/M2, Q3WK
     Dates: start: 20110624
  2. NEULASTA [Suspect]
     Indication: PROPHYLAXIS
     Dosage: 6 MG, ONE TIME DOSE
     Route: 058
     Dates: start: 20110828, end: 20110828

REACTIONS (4)
  - DRUG INEFFECTIVE [None]
  - METASTASES TO LUNG [None]
  - NEUTROPENIA [None]
  - METASTASES TO LIVER [None]
